FAERS Safety Report 9935003 (Version 1)
Quarter: 2014Q1

REPORT INFORMATION
  Report Type: Spontaneous
  Country: US (occurrence: US)
  Receive Date: 20140228
  Receipt Date: 20140228
  Transmission Date: 20141002
  Serious: Yes (Other)
  Sender: FDA-Public Use
  Company Number: US-JNJFOC-20140212438

PATIENT
  Age: 5 Year
  Sex: Male

DRUGS (5)
  1. DOXORUBICIN [Suspect]
     Indication: NEUROBLASTOMA
     Dosage: CUMULATIVE DOSAGE WAS 225 MG/M^2
     Route: 042
  2. CYCLOPHOSPHAMIDE [Suspect]
     Indication: NEUROBLASTOMA
     Dosage: CUMULATIVE DOSAGE WAS 12,600 MG/M^2
     Route: 065
  3. CISPLATIN [Suspect]
     Indication: NEUROBLASTOMA
     Dosage: CUMULATIVE DOSAGE WAS 400 MG/M^2
     Route: 065
  4. ETOPOSIDE [Suspect]
     Indication: NEUROBLASTOMA
     Dosage: CUMULATIVE DOSAGE WAS 1200 MG/M^2
     Route: 065
  5. RADIOTHERAPY [Suspect]
     Indication: NEUROBLASTOMA
     Dosage: 2,100 CGY TO RIGHT SUPERIOR MEDIASTINUM??AND LEFT ADRENAL
     Route: 065

REACTIONS (2)
  - Myelodysplastic syndrome [Recovered/Resolved]
  - Off label use [Unknown]
